FAERS Safety Report 16168486 (Version 1)
Quarter: 2019Q2

REPORT INFORMATION
  Report Type: Spontaneous
  Country: US (occurrence: US)
  Receive Date: 20190408
  Receipt Date: 20190408
  Transmission Date: 20190711
  Serious: No
  Sender: FDA-Public Use
  Company Number: US-GLAXOSMITHKLINE-US2019059840

PATIENT
  Age: 32 Year
  Sex: Female

DRUGS (1)
  1. FLONASE [Suspect]
     Active Substance: FLUTICASONE PROPIONATE
     Indication: HYPERSENSITIVITY
     Dosage: UNK
     Dates: start: 20190402

REACTIONS (7)
  - Sinus pain [Unknown]
  - Eye pain [Unknown]
  - Hypersensitivity [Unknown]
  - Sinus headache [Unknown]
  - Oropharyngeal pain [Unknown]
  - Paranasal sinus discomfort [Unknown]
  - Hyperhidrosis [Unknown]

NARRATIVE: CASE EVENT DATE: 20190402
